FAERS Safety Report 9384982 (Version 1)
Quarter: 2013Q3

REPORT INFORMATION
  Report Type: Spontaneous
  Country: US (occurrence: US)
  Receive Date: 20130705
  Receipt Date: 20130705
  Transmission Date: 20140515
  Serious: Yes (Other)
  Sender: FDA-Public Use
  Company Number: US-GLAXOSMITHKLINE-A0963812A

PATIENT
  Age: 64 Year
  Sex: Female
  Weight: 72.19 kg

DRUGS (16)
  1. BENLYSTA [Suspect]
     Indication: SYSTEMIC LUPUS ERYTHEMATOSUS
     Route: 042
     Dates: start: 20110809
  2. KEPPRA [Concomitant]
  3. PREDNISONE [Concomitant]
  4. METHOTREXATE [Concomitant]
  5. SYNTHROID [Concomitant]
  6. DIGOXIN [Concomitant]
  7. COUMADIN [Concomitant]
  8. FOLIC ACID [Concomitant]
  9. CRESTOR [Concomitant]
  10. VITAMIN E [Concomitant]
  11. VITAMIN D [Concomitant]
  12. PERCOCET [Concomitant]
  13. NEXIUM [Concomitant]
  14. CO Q 10 [Concomitant]
  15. SOTALOL [Concomitant]
  16. INSULIN [Concomitant]

REACTIONS (5)
  - Depressed mood [Not Recovered/Not Resolved]
  - Crying [Unknown]
  - Blindness [Unknown]
  - White blood cell count increased [Unknown]
  - Urinary tract infection [Unknown]
